FAERS Safety Report 10478351 (Version 1)
Quarter: 2014Q3

REPORT INFORMATION
  Report Type: Spontaneous
  Country: US (occurrence: None)
  Receive Date: 20140925
  Receipt Date: 20140925
  Transmission Date: 20150326
  Serious: Yes (Disabling, Other)
  Sender: FDA-Public Use
  Company Number: None

PATIENT
  Age: 40 Year
  Sex: Female
  Weight: 81.65 kg

DRUGS (3)
  1. LUPRON [Suspect]
     Active Substance: LEUPROLIDE ACETATE
     Indication: UTERINE LEIOMYOMA
     Dosage: 1X Q 28 DAYS INTO THE MUSCLE
     Route: 030
  2. LUPRON [Suspect]
     Active Substance: LEUPROLIDE ACETATE
     Indication: POLYCYSTIC OVARIES
     Dosage: 1X Q 28 DAYS INTO THE MUSCLE
     Route: 030
  3. LUPRON [Suspect]
     Active Substance: LEUPROLIDE ACETATE
     Indication: ENDOMETRIOSIS
     Dosage: 1X Q 28 DAYS INTO THE MUSCLE
     Route: 030

REACTIONS (9)
  - Palpitations [None]
  - Pain [None]
  - Chest pain [None]
  - Musculoskeletal stiffness [None]
  - Memory impairment [None]
  - Rash [None]
  - Refusal of treatment by patient [None]
  - Dyspnoea [None]
  - Pain in extremity [None]
